FAERS Safety Report 4312217-5 (Version None)
Quarter: 2004Q1

REPORT INFORMATION
  Report Type: 
  Country: None (occurrence: None)
  Receive Date: 20040305
  Receipt Date: 20040225
  Transmission Date: 20041129
  Serious: Yes (Hospitalization)
  Sender: FDA-Public Use
  Company Number: WAES 0402FIN00010

PATIENT
  Age: 84 Year
  Sex: Male

DRUGS (4)
  1. AMLODIPINE BESYLATE [Concomitant]
     Indication: CORONARY ARTERY DISEASE
     Route: 048
  2. PROSCAR [Suspect]
     Indication: BENIGN PROSTATIC HYPERPLASIA
     Route: 048
     Dates: start: 20010401
  3. SOTALOL HYDROCHLORIDE [Concomitant]
     Indication: CORONARY ARTERY DISEASE
     Route: 048
  4. TEMAZEPAM [Concomitant]
     Route: 048

REACTIONS (2)
  - BREAST CANCER MALE [None]
  - METASTASES TO LYMPH NODES [None]
